FAERS Safety Report 4764732-8 (Version None)
Quarter: 2005Q3

REPORT INFORMATION
  Report Type: 
  Country: None (occurrence: None)
  Receive Date: 20050909
  Receipt Date: 20050801
  Transmission Date: 20060218
  Serious: Yes (Death, Hospitalization)
  Sender: FDA-Public Use
  Company Number: US-MERCK-0508USA00441

PATIENT
  Age: 81 Year
  Sex: Female
  Weight: 102 kg

DRUGS (7)
  1. VIOXX [Suspect]
     Indication: RHEUMATOID ARTHRITIS
     Route: 048
     Dates: start: 20020801, end: 20030504
  2. [THERAPY UNSPECIFIED] [Concomitant]
     Route: 065
  3. DEMADEX [Concomitant]
     Route: 065
  4. LASIX [Concomitant]
     Route: 065
  5. BUMEX [Concomitant]
     Route: 065
  6. TYLENOL [Concomitant]
     Route: 065
  7. CODEINE [Concomitant]
     Route: 065

REACTIONS (6)
  - ATRIAL FIBRILLATION [None]
  - CARDIAC FAILURE CONGESTIVE [None]
  - CARDIO-RESPIRATORY ARREST [None]
  - CEREBROVASCULAR ACCIDENT [None]
  - HYPERTENSION [None]
  - PNEUMONIA ASPIRATION [None]
